FAERS Safety Report 13579152 (Version 1)
Quarter: 2017Q2

REPORT INFORMATION
  Report Type: Spontaneous
  Country: US (occurrence: US)
  Receive Date: 20170524
  Receipt Date: 20170524
  Transmission Date: 20170830
  Serious: No
  Sender: FDA-Public Use
  Company Number: None

PATIENT
  Age: 63 Year
  Sex: Female

DRUGS (1)
  1. COPAXONE [Suspect]
     Active Substance: GLATIRAMER ACETATE
     Indication: MULTIPLE SCLEROSIS
     Dosage: 40 MG/ML THREE TIMES A WEEK INJECTION
     Dates: start: 20160101

REACTIONS (4)
  - Chest discomfort [None]
  - Hypertension [None]
  - Dizziness [None]
  - Vomiting [None]
